FAERS Safety Report 5184418-8 (Version None)
Quarter: 2006Q4

REPORT INFORMATION
  Report Type: 
  Country: None (occurrence: None)
  Receive Date: 20061220
  Receipt Date: 20060406
  Transmission Date: 20070319
  Serious: No
  Sender: FDA-Public Use
  Company Number: US-GLAXOSMITHKLINE-A0600724A

PATIENT
  Age: 60 Year
  Sex: Female

DRUGS (3)
  1. NICODERM CQ [Suspect]
     Dates: start: 20060405, end: 20060405
  2. ADVAIR DISKUS 100/50 [Concomitant]
  3. ALBUTEROL [Concomitant]

REACTIONS (2)
  - ANXIETY [None]
  - HEART RATE INCREASED [None]
